FAERS Safety Report 4918912-9 (Version None)
Quarter: 2006Q1

REPORT INFORMATION
  Report Type: 
  Country: None (occurrence: None)
  Receive Date: 20060222
  Receipt Date: 20050112
  Transmission Date: 20060701
  Serious: Yes (Death, Hospitalization)
  Sender: FDA-Public Use
  Company Number: US-MERCK-0501USA02367

PATIENT
  Age: 48 Year
  Sex: Female
  Weight: 41 kg

DRUGS (1)
  1. VIOXX [Suspect]
     Route: 048
     Dates: start: 20040527, end: 20041018

REACTIONS (5)
  - ARTERIOSCLEROSIS CORONARY ARTERY [None]
  - CARDIAC FAILURE CONGESTIVE [None]
  - DEATH [None]
  - RENAL FAILURE CHRONIC [None]
  - VENTRICULAR FIBRILLATION [None]
